FAERS Safety Report 9351809 (Version 1)
Quarter: 2013Q2

REPORT INFORMATION
  Report Type: Spontaneous
  Country: US (occurrence: US)
  Receive Date: 20130617
  Receipt Date: 20130617
  Transmission Date: 20140414
  Serious: Yes (Death)
  Sender: FDA-Public Use
  Company Number: US-GLAXOSMITHKLINE-A0977783A

PATIENT
  Age: 27 Year
  Sex: Female
  Weight: 73 kg

DRUGS (10)
  1. BENLYSTA [Suspect]
     Indication: SYSTEMIC LUPUS ERYTHEMATOSUS
     Dosage: 10MGK CYCLIC
     Route: 042
     Dates: start: 20110708, end: 20120417
  2. DIAZEPAM [Suspect]
     Indication: PRODUCT USED FOR UNKNOWN INDICATION
     Route: 065
     Dates: end: 201204
  3. ALPRAZOLAM [Suspect]
     Indication: PRODUCT USED FOR UNKNOWN INDICATION
     Route: 065
     Dates: end: 201204
  4. OXYCONTIN [Suspect]
     Indication: PRODUCT USED FOR UNKNOWN INDICATION
     Route: 065
     Dates: end: 201204
  5. PREDNISONE [Concomitant]
  6. HYDROXYCHLOROQUINE [Concomitant]
  7. ZOLPIDEM [Concomitant]
  8. PERCOCET [Concomitant]
  9. COUMADIN [Concomitant]
     Dates: start: 2009, end: 201203
  10. CANNABIS [Concomitant]
     Indication: PRODUCT USED FOR UNKNOWN INDICATION

REACTIONS (29)
  - Sudden death [Fatal]
  - Toxicity to various agents [Fatal]
  - Asthenia [Unknown]
  - Dizziness [Unknown]
  - Abdominal pain [Unknown]
  - Dyspnoea [Unknown]
  - Nausea [Unknown]
  - Tachycardia [Unknown]
  - Cardiomegaly [Unknown]
  - Pulmonary fibrosis [Unknown]
  - Pneumonia [Unknown]
  - Pleural effusion [Unknown]
  - Pericardial effusion [Unknown]
  - Lung infiltration [Unknown]
  - Red blood cell count increased [Unknown]
  - Fibrin D dimer increased [Unknown]
  - Carbon dioxide decreased [Unknown]
  - Blood urea decreased [Unknown]
  - Calcium ionised decreased [Unknown]
  - Pyrexia [Unknown]
  - Oxygen saturation decreased [Unknown]
  - Chest pain [Unknown]
  - Abdominal pain [Unknown]
  - Respiratory disorder [Unknown]
  - Atelectasis [Unknown]
  - Lung infiltration [Unknown]
  - Pleural effusion [Unknown]
  - Pericardial effusion [Unknown]
  - Brain oedema [Unknown]
